FAERS Safety Report 5575056-3 (Version None)
Quarter: 2007Q4

REPORT INFORMATION
  Report Type: 
  Country: None (occurrence: None)
  Receive Date: 20071221
  Receipt Date: 20071221
  Transmission Date: 20080405
  Serious: No
  Sender: FDA-Public Use
  Company Number: None

PATIENT
  Age: 31 Year
  Sex: Female
  Weight: 66.2252 kg

DRUGS (2)
  1. EFFEXOR [Suspect]
     Indication: DEPRESSION
     Dosage: 37.5 MG  1 TIME DAILY  PO
     Route: 048
     Dates: start: 20071206, end: 20071207
  2. MAXALT-MLT [Suspect]
     Indication: MIGRAINE
     Dosage: 10 MG UP TO 2 10 MG   2 TIMES DAILY PRN  PO
     Route: 048
     Dates: start: 20071205, end: 20071207

REACTIONS (6)
  - CONVULSION [None]
  - DYSARTHRIA [None]
  - HEADACHE [None]
  - LOSS OF CONSCIOUSNESS [None]
  - NAUSEA [None]
  - SYNCOPE [None]
